FAERS Safety Report 5241035-9 (Version None)
Quarter: 2007Q1

REPORT INFORMATION
  Report Type: 
  Country: None (occurrence: None)
  Receive Date: 20070220
  Receipt Date: 20070212
  Transmission Date: 20070707
  Serious: Yes (Hospitalization)
  Sender: FDA-Public Use
  Company Number: US-MERCK-0701USA03851

PATIENT
  Age: 77 Year
  Sex: Male
  Weight: 82 kg

DRUGS (8)
  1. JANUVIA [Suspect]
     Indication: DIABETES MELLITUS NON-INSULIN-DEPENDENT
     Route: 048
     Dates: start: 20070102, end: 20070116
  2. ACTOS [Concomitant]
     Indication: DIABETES MELLITUS
     Route: 048
  3. CRESTOR [Concomitant]
     Indication: LIPIDS
     Route: 048
     Dates: start: 20070101
  4. DOXAZOSIN MESYLATE [Concomitant]
     Indication: BENIGN PROSTATIC HYPERPLASIA
     Route: 048
  5. OMEGA-3 MARINE TRIGLYCERIDES [Concomitant]
     Indication: CORONARY ARTERY DISEASE
     Route: 048
  6. VITAMIN E [Concomitant]
     Route: 048
  7. MICRO-K [Concomitant]
     Indication: CORONARY ARTERY DISEASE
     Route: 048
  8. NIASPAN [Concomitant]
     Indication: CORONARY ARTERY DISEASE
     Route: 048

REACTIONS (1)
  - PANCREATITIS [None]
